FAERS Safety Report 5392475-9 (Version None)
Quarter: 2007Q3

REPORT INFORMATION
  Report Type: 
  Country: None (occurrence: None)
  Receive Date: 20070720
  Receipt Date: 20070717
  Transmission Date: 20080115
  Serious: Yes (Life-Threatening)
  Sender: FDA-Public Use
  Company Number: US-BRISTOL-MYERS SQUIBB COMPANY-13847884

PATIENT
  Age: 40 Year
  Sex: Female

DRUGS (11)
  1. ABATACEPT [Suspect]
     Indication: RHEUMATOID ARTHRITIS
     Dates: start: 20040426
  2. PREDNISONE [Concomitant]
  3. CELECOXIB [Concomitant]
  4. LEVONORGESTREL + ETHINYL ESTRADIOL [Concomitant]
  5. VITAMIN CAP [Concomitant]
  6. CALCIUM CHLORIDE [Concomitant]
  7. FOLIC ACID [Concomitant]
  8. DARVOCET [Concomitant]
     Dates: start: 20060121
  9. DECONSAL [Concomitant]
     Dates: start: 20070523
  10. TYLENOL SINUS [Concomitant]
     Dates: start: 20070523
  11. DEXTROMETHORPHAN+GUAIFENESIN+PSEUDOEPHEDRINE [Concomitant]

REACTIONS (3)
  - CHILLS [None]
  - MULTI-ORGAN FAILURE [None]
  - PYREXIA [None]
